FAERS Safety Report 10349350 (Version 1)
Quarter: 2014Q3

REPORT INFORMATION
  Report Type: Spontaneous
  Country: US (occurrence: US)
  Receive Date: 20140730
  Receipt Date: 20140730
  Transmission Date: 20150326
  Serious: Yes (Hospitalization, Other)
  Sender: FDA-Public Use
  Company Number: US-AMGEN-USASP2014055348

PATIENT
  Age: 67 Year
  Sex: Female
  Weight: 63.04 kg

DRUGS (22)
  1. IXABEPILONE [Concomitant]
     Active Substance: IXABEPILONE
     Dosage: 45 MG (AT 27.2727 MG/M2), DAILY INTERMITTENT OVER 180 MINUTES FOR 1 DAY IN RL 250 ML (6)
     Route: 042
  2. NEUPOGEN [Suspect]
     Active Substance: FILGRASTIM
     Indication: NEUTROPENIA
     Dosage: 480 MCG, DAILY FOR 5 DAYS
     Route: 065
  3. ALOXI [Concomitant]
     Active Substance: PALONOSETRON HYDROCHLORIDE
     Dosage: 0.25 MG, DAILY OVER 10 MINUTES FOR 1 DAY IN NS 50 ML (2) AT THE RATE OF 300 ML/HR
     Route: 042
  4. PERCOCET [Concomitant]
     Active Substance: ACETAMINOPHEN\OXYCODONE HYDROCHLORIDE
     Dosage: 1-2 DOSE(S) (OF 5-325 MG), Q 4 TO 6 HOURS PRN
     Route: 048
  5. ZOMETA [Concomitant]
     Active Substance: ZOLEDRONIC ACID
     Dosage: 4 MG, DAILY OVER 30 MINUTES FOR 1 DAY IN NS 150 ML (1) AT THO RATE OF 300 ML/HR
     Route: 042
     Dates: start: 20111011
  6. TAXOTERE [Concomitant]
     Active Substance: DOCETAXEL
     Indication: BREAST CANCER METASTATIC
     Dosage: UNK
  7. XELODA [Concomitant]
     Active Substance: CAPECITABINE
     Indication: BONE CANCER
  8. AMBIEN [Concomitant]
     Active Substance: ZOLPIDEM TARTRATE
     Dosage: 5 MG, AT BEDTIME PRN
     Route: 048
  9. NEULASTA [Suspect]
     Active Substance: PEGFILGRASTIM
     Indication: NEUTROPENIA
     Dosage: 6 MG, QD FOR 1 DAY
     Route: 058
     Dates: start: 20120828
  10. LACTULOSE. [Concomitant]
     Active Substance: LACTULOSE
     Dosage: 15-30 ML, BID PRN
     Route: 048
  11. IXEMPRA [Concomitant]
     Active Substance: IXABEPILONE
     Dosage: UNK
     Dates: start: 20120821
  12. AFINITOR [Concomitant]
     Active Substance: EVEROLIMUS
     Dosage: 10 MG, DAILY FOR 30 DAYS
     Route: 048
  13. XELODA [Concomitant]
     Active Substance: CAPECITABINE
     Indication: METASTASES TO LIVER
     Dosage: 1000 MG, BID
     Route: 048
     Dates: start: 20120911
  14. XELODA [Concomitant]
     Active Substance: CAPECITABINE
     Indication: BREAST CANCER METASTATIC
  15. GABAPENTIN. [Concomitant]
     Active Substance: GABAPENTIN
     Indication: PERIPHERAL SENSORY NEUROPATHY
     Dosage: UNK
     Route: 048
  16. AROMASIN [Concomitant]
     Active Substance: EXEMESTANE
     Dosage: 25 MG, DAILY FOR 30 DAYS
     Route: 048
  17. ABRAXANE [Concomitant]
     Active Substance: PACLITAXEL
     Dosage: 200 MG (AT 121.2 MG/M2), DAILY OVER 30 MINUTES FOR 1 DAY
     Route: 042
     Dates: start: 20110222
  18. DIPHENHYDRAMINE HCL [Concomitant]
     Active Substance: DIPHENHYDRAMINE HYDROCHLORIDE
     Dosage: 25 MG, DAILY INTERMITTENT OVER 15 MINUTES FOR 1 DAY IN NS 50 ML (3) AT THE RATE OF 200 ML/HR
     Route: 042
  19. FAMOTIDIN [Concomitant]
     Dosage: 20 MG, DAILY INTERMITTENT OVER 15 MINUTES FOR 1 DAY IN NS 50 ML (4) AT THE RATE OF 200 ML/HR
     Route: 042
  20. GRANISETRON                        /01178102/ [Concomitant]
     Active Substance: GRANISETRON
     Dosage: 1 MG, DAILY INTERMITTENT OVER 10 MINUTES FOR 1 DAY IN NS 50 ML (1) AT THE RATE OF 300 ML/HR
     Route: 042
  21. DEXAMETHASONE SODIUM PHOSPHATE [Concomitant]
     Active Substance: DEXAMETHASONE SODIUM PHOSPHATE
     Dosage: 10 MG, DAILY INTERMITTENT OVER 10 MINUTES FOR 1 DAY IN NS 50 ML (3) AT THE RATE OF 300 ML/HR
     Route: 042
  22. CYTOXAN [Concomitant]
     Active Substance: CYCLOPHOSPHAMIDE
     Indication: BREAST CANCER METASTATIC
     Dosage: UNK

REACTIONS (22)
  - Skin lesion [Unknown]
  - Pigmentation disorder [Unknown]
  - Chest pain [Unknown]
  - Vertigo [Unknown]
  - Catheter placement [Unknown]
  - Anaemia [Unknown]
  - Metastases to liver [Unknown]
  - Arthritis [Unknown]
  - Onychomycosis [Unknown]
  - Vomiting [Unknown]
  - Mucosal inflammation [Unknown]
  - Dizziness [Unknown]
  - Malignant neoplasm progression [Unknown]
  - Pain in extremity [Recovered/Resolved]
  - Acral lentiginous melanoma [Unknown]
  - Fungal infection [Unknown]
  - Neutropenia [Not Recovered/Not Resolved]
  - Nausea [Unknown]
  - Pulmonary mass [Unknown]
  - Leukopenia [Unknown]
  - Headache [Unknown]
  - Epistaxis [Unknown]

NARRATIVE: CASE EVENT DATE: 20130520
